FAERS Safety Report 10169974 (Version 2)
Quarter: 2014Q2

REPORT INFORMATION
  Report Type: Spontaneous
  Country: US (occurrence: US)
  Receive Date: 20140513
  Receipt Date: 20140602
  Transmission Date: 20141212
  Serious: Yes (Death, Other)
  Sender: FDA-Public Use
  Company Number: US-ASTELLAS-2014US005049

PATIENT
  Age: 65 Year
  Sex: Male

DRUGS (23)
  1. XTANDI [Suspect]
     Indication: PROSTATE CANCER
     Route: 048
     Dates: start: 20140306, end: 20140421
  2. DOCETAXEL [Concomitant]
     Indication: PROSTATE CANCER
     Dosage: UNK UNK, UNKNOWN FREQ.
     Route: 065
  3. CALCITRIOL [Concomitant]
     Indication: PRODUCT USED FOR UNKNOWN INDICATION
     Dosage: 0.25 ?G, ONCE DAILY
     Route: 048
  4. CALCIUM CITRATE + D [Concomitant]
     Indication: PRODUCT USED FOR UNKNOWN INDICATION
     Route: 048
  5. DECADRON                           /00016001/ [Concomitant]
     Indication: PRODUCT USED FOR UNKNOWN INDICATION
     Dosage: UNK UNK, UNKNOWN FREQ.
     Route: 065
  6. COLACE [Concomitant]
     Indication: PRODUCT USED FOR UNKNOWN INDICATION
     Route: 048
  7. LUNESTA [Concomitant]
     Indication: PRODUCT USED FOR UNKNOWN INDICATION
     Dosage: 2 MG, NIGHTLY AS NEEDED
     Route: 048
  8. ACTIQ [Concomitant]
     Indication: PAIN
     Dosage: 200 ?G, EVERY 4 HOURS AS NEEDED
     Route: 048
  9. DILAUDID [Concomitant]
     Indication: PAIN
     Dosage: TAKE 1-2 TABS Q2 HOURS PRN
     Route: 048
  10. LUPRON [Concomitant]
     Indication: PRODUCT USED FOR UNKNOWN INDICATION
     Dosage: EVERY 3 MONTHS
     Route: 030
  11. ZOFRAN                             /00955301/ [Concomitant]
     Indication: NAUSEA
     Route: 048
  12. OXYCONTIN [Concomitant]
     Indication: PRODUCT USED FOR UNKNOWN INDICATION
     Route: 048
  13. MIRALAX                            /00754501/ [Concomitant]
     Indication: PRODUCT USED FOR UNKNOWN INDICATION
     Dosage: UNK UNK, UNKNOWN FREQ.
     Route: 065
  14. PREDNISONE [Concomitant]
     Indication: PRODUCT USED FOR UNKNOWN INDICATION
     Route: 048
  15. COMPAZINE                          /00013302/ [Concomitant]
     Indication: NAUSEA
     Route: 048
  16. SENOKOT                            /00142201/ [Concomitant]
     Indication: PRODUCT USED FOR UNKNOWN INDICATION
     Dosage: 17.2 MG, NIGHTLY AT BEDTIME
     Route: 048
  17. TYLENOL                            /00020001/ [Concomitant]
     Indication: PAIN
     Route: 048
  18. LOTEMAX [Concomitant]
     Indication: PRODUCT USED FOR UNKNOWN INDICATION
     Dosage: UNK UNK, UNKNOWN FREQ.
     Route: 047
  19. MULTIVITAMIN                       /00097801/ [Concomitant]
     Indication: PRODUCT USED FOR UNKNOWN INDICATION
     Route: 048
  20. ROXICODONE [Concomitant]
     Indication: PAIN
     Route: 048
  21. ROXICODONE [Concomitant]
     Route: 048
  22. XYLOCAINE                          /00033401/ [Concomitant]
     Indication: PRODUCT USED FOR UNKNOWN INDICATION
     Dosage: UNK UNK, UNKNOWN FREQ.
     Route: 065
  23. NEO-SYNEPHRINE                     /00116302/ [Concomitant]
     Indication: PRODUCT USED FOR UNKNOWN INDICATION
     Dosage: UNK UNK, UNKNOWN FREQ.
     Route: 045

REACTIONS (2)
  - Malignant neoplasm progression [Fatal]
  - Cardio-respiratory arrest [Fatal]
